FAERS Safety Report 7171189-9 (Version None)
Quarter: 2010Q4

REPORT INFORMATION
  Report Type: 
  Country: None (occurrence: None)
  Receive Date: 20101217
  Receipt Date: 20101210
  Transmission Date: 20110411
  Serious: Yes (Other)
  Sender: FDA-Public Use
  Company Number: US-JNJFOC-20100702246

PATIENT
  Age: 49 Year
  Sex: Female

DRUGS (2)
  1. CHILDREN'S MOTRIN [Suspect]
     Indication: GINGIVAL DISORDER
     Route: 048
  2. CHILDREN'S MOTRIN [Suspect]
     Indication: PAIN
     Route: 048

REACTIONS (9)
  - ASTHMA [None]
  - BRONCHITIS [None]
  - DEHYDRATION [None]
  - EATING DISORDER [None]
  - HEADACHE [None]
  - MALAISE [None]
  - PRODUCT QUALITY ISSUE [None]
  - RASH [None]
  - VOMITING [None]
